FAERS Safety Report 6389168-8 (Version None)
Quarter: 2009Q4

REPORT INFORMATION
  Report Type: 
  Country: None (occurrence: None)
  Receive Date: 20091006
  Receipt Date: 20071001
  Transmission Date: 20100525
  Serious: Yes (Hospitalization, Other)
  Sender: FDA-Public Use
  Company Number: US-ASTRAZENECA-2007UW14727

PATIENT
  Age: 20587 Day
  Sex: Female
  Weight: 81.6 kg

DRUGS (14)
  1. SEROQUEL [Suspect]
     Indication: DEPRESSION
     Dosage: 150 TO 300 MG
     Route: 048
     Dates: start: 20031101
  2. SEROQUEL [Suspect]
     Indication: POST-TRAUMATIC STRESS DISORDER
     Dosage: 150 TO 300 MG
     Route: 048
     Dates: start: 20031101
  3. SEROQUEL [Suspect]
     Indication: NIGHTMARE
     Dosage: 150 TO 300 MG
     Route: 048
     Dates: start: 20031101
  4. SEROQUEL [Suspect]
     Dosage: 100-800 MG
     Route: 048
     Dates: start: 20040401
  5. SEROQUEL [Suspect]
     Dosage: 100-800 MG
     Route: 048
     Dates: start: 20040401
  6. SEROQUEL [Suspect]
     Dosage: 100-800 MG
     Route: 048
     Dates: start: 20040401
  7. ZYPREXA [Concomitant]
     Indication: DEPRESSION
     Dosage: 2.5 TO 10 MG
     Dates: start: 20000901, end: 20010601
  8. LEVOTHYROXINE SODIUM [Concomitant]
     Dates: start: 20060623
  9. PROVERA [Concomitant]
     Dosage: 1.25-7.5 MG
     Dates: start: 19990903
  10. KLONOPIN [Concomitant]
     Dosage: 0.5-2 MG
     Dates: start: 20000211
  11. ESTRACE [Concomitant]
     Dosage: 0.25-1 MG
     Dates: start: 19990903
  12. EFFEXOR XR [Concomitant]
     Dosage: 75-300 MG
     Dates: start: 20020627
  13. ATIVAN [Concomitant]
     Dates: start: 20040401
  14. REMERON [Concomitant]
     Dates: start: 20020627

REACTIONS (13)
  - ACUTE ABDOMEN [None]
  - APPENDICECTOMY [None]
  - APPENDICITIS [None]
  - APPENDICITIS PERFORATED [None]
  - DIABETES MELLITUS [None]
  - DIZZINESS [None]
  - HYPERGLYCAEMIA [None]
  - HYPERLIPIDAEMIA [None]
  - PERITONITIS [None]
  - SUICIDAL IDEATION [None]
  - TYPE 2 DIABETES MELLITUS [None]
  - VISUAL IMPAIRMENT [None]
  - WEIGHT INCREASED [None]
